FAERS Safety Report 4815204-3 (Version None)
Quarter: 2005Q4

REPORT INFORMATION
  Report Type: 
  Country: None (occurrence: None)
  Receive Date: 20051026
  Receipt Date: 20051013
  Transmission Date: 20060501
  Serious: Yes (Disabling, Other)
  Sender: FDA-Public Use
  Company Number: HQWYE052217OCT05

PATIENT
  Age: 79 Year
  Sex: Female
  Weight: 62.2 kg

DRUGS (4)
  1. EFFEXOR XR [Suspect]
     Indication: DEPRESSION
     Dosage: SEE IMAGE
     Route: 048
     Dates: start: 20050201, end: 20050101
  2. EFFEXOR XR [Suspect]
     Indication: DEPRESSION
     Dosage: SEE IMAGE
     Route: 048
     Dates: start: 20020701, end: 20050201
  3. EFFEXOR XR [Suspect]
     Indication: DEPRESSION
     Dosage: SEE IMAGE
     Route: 048
     Dates: start: 20050101, end: 20050901
  4. LEVOTHROID [Concomitant]

REACTIONS (10)
  - ABASIA [None]
  - BLINDNESS TRANSIENT [None]
  - DRUG WITHDRAWAL SYNDROME [None]
  - DYSSTASIA [None]
  - EXHIBITIONISM [None]
  - INFECTION [None]
  - NEOPLASM MALIGNANT [None]
  - PHOTOPSIA [None]
  - POST PROCEDURAL COMPLICATION [None]
  - RASH PUSTULAR [None]
